FAERS Safety Report 19193456 (Version 3)
Quarter: 2021Q3

REPORT INFORMATION
  Report Type: Other
  Country: US (occurrence: US)
  Receive Date: 20210429
  Receipt Date: 20210813
  Transmission Date: 20211014
  Serious: Yes (Death, Other)
  Sender: FDA-Public Use
  Company Number: US-ROCHE-2814553

PATIENT

DRUGS (2)
  1. COPANLISIB. [Suspect]
     Active Substance: COPANLISIB
     Indication: NON-HODGKIN^S LYMPHOMA UNSPECIFIED HISTOLOGY INDOLENT
     Route: 042
  2. RITUXIMAB. [Suspect]
     Active Substance: RITUXIMAB
     Indication: NON-HODGKIN^S LYMPHOMA UNSPECIFIED HISTOLOGY INDOLENT
     Dosage: ON DAYS 1, 8, 15, AND 22 DURING CYCLE 1 AND THEN DAY 1 OF CYCLES 3, 5, 7, AND 9
     Route: 042

REACTIONS (197)
  - Dermatitis exfoliative generalised [Unknown]
  - Enteritis [Unknown]
  - Uterine prolapse [Unknown]
  - Bone marrow failure [Unknown]
  - Fungal infection [Unknown]
  - Inguinal hernia [Unknown]
  - Anaphylactic reaction [Unknown]
  - Appendicitis [Unknown]
  - COVID-19 pneumonia [Unknown]
  - Gastrointestinal toxicity [Unknown]
  - Gingival recession [Unknown]
  - Implant site infection [Unknown]
  - Oesophageal ulcer [Unknown]
  - Pulmonary tuberculosis [Unknown]
  - Lipase increased [Unknown]
  - Death [Fatal]
  - Hypertension [Unknown]
  - Anaemia [Unknown]
  - Pneumonia [Unknown]
  - White blood cell count decreased [Unknown]
  - Platelet count decreased [Unknown]
  - Aspartate aminotransferase increased [Unknown]
  - Bronchitis [Unknown]
  - Thrombocytopenia [Unknown]
  - Hypoalbuminaemia [Unknown]
  - Hypomagnesaemia [Unknown]
  - Diabetes mellitus [Unknown]
  - Bone pain [Unknown]
  - Pneumocystis jirovecii pneumonia [Unknown]
  - Dermatitis [Unknown]
  - Fall [Unknown]
  - Pain [Unknown]
  - Erythema multiforme [Unknown]
  - Deep vein thrombosis [Unknown]
  - Acute sinusitis [Unknown]
  - Anal abscess [Unknown]
  - IIIrd nerve paralysis [Unknown]
  - Administration site extravasation [Unknown]
  - Soft tissue infection [Unknown]
  - Subcutaneous abscess [Unknown]
  - Acute myocardial infarction [Unknown]
  - Arthrodesis [Unknown]
  - Cholecystitis [Unknown]
  - Colitis microscopic [Unknown]
  - Inguinal hernia repair [Unknown]
  - Diarrhoea [Unknown]
  - Nausea [Unknown]
  - Upper respiratory tract infection [Unknown]
  - Mucosal inflammation [Unknown]
  - Lower respiratory tract infection [Unknown]
  - Gastroenteritis [Unknown]
  - Leukocytosis [Unknown]
  - Hypogammaglobulinaemia [Unknown]
  - Cytomegalovirus infection reactivation [Unknown]
  - Pancreatitis [Unknown]
  - Sciatica [Unknown]
  - Cerebral infarction [Unknown]
  - Hypermagnesaemia [Unknown]
  - Bronchitis chronic [Unknown]
  - Wound dehiscence [Unknown]
  - Hepatotoxicity [Unknown]
  - Emphysema [Unknown]
  - Idiopathic interstitial pneumonia [Unknown]
  - Myocardial infarction [Unknown]
  - Pneumonia influenzal [Unknown]
  - Subcutaneous emphysema [Unknown]
  - Blood creatine phosphokinase increased [Unknown]
  - Blood pressure increased [Unknown]
  - Blood glucose increased [Unknown]
  - Activated partial thromboplastin time prolonged [Unknown]
  - Transaminases increased [Unknown]
  - Headache [Unknown]
  - Rash [Unknown]
  - Dysgeusia [Unknown]
  - Chest pain [Unknown]
  - Pleural effusion [Unknown]
  - Hypercalcaemia [Unknown]
  - Calculus urinary [Unknown]
  - Hypoxia [Unknown]
  - Presyncope [Unknown]
  - Hepatic function abnormal [Unknown]
  - Hypernatraemia [Unknown]
  - Tooth infection [Unknown]
  - Pneumonia cytomegaloviral [Unknown]
  - Pyelonephritis [Unknown]
  - COVID-19 [Unknown]
  - Enterocolitis [Unknown]
  - Essential hypertension [Unknown]
  - Eustachian valve hypertrophy [Unknown]
  - Phimosis [Unknown]
  - Squamous cell carcinoma [Unknown]
  - Transfusion-related acute lung injury [Unknown]
  - Urethritis [Unknown]
  - Neutrophil count decreased [Unknown]
  - Asthenia [Unknown]
  - Pain in extremity [Unknown]
  - Hypokalaemia [Unknown]
  - Aphthous ulcer [Unknown]
  - Herpes zoster [Unknown]
  - Hypersensitivity [Unknown]
  - Hypotension [Unknown]
  - Paronychia [Unknown]
  - Peripheral sensory neuropathy [Unknown]
  - Throat irritation [Unknown]
  - Periodontitis [Unknown]
  - Skin ulcer [Unknown]
  - Humerus fracture [Unknown]
  - Sepsis [Unknown]
  - Anal fistula [Unknown]
  - Bronchiolitis [Unknown]
  - Thrombosis [Unknown]
  - Anal infection [Unknown]
  - Bone loss [Unknown]
  - Endocarditis bacterial [Unknown]
  - Hepatitis acute [Unknown]
  - Oedema [Unknown]
  - Tension headache [Unknown]
  - Ureteral stent removal [Unknown]
  - Hepatic enzyme increased [Unknown]
  - Hyperglycaemia [Unknown]
  - Vomiting [Unknown]
  - Urinary tract infection [Unknown]
  - Sinusitis [Unknown]
  - Hypophosphataemia [Unknown]
  - Infusion site extravasation [Unknown]
  - Dental caries [Unknown]
  - Tachycardia [Unknown]
  - Hypercholesterolaemia [Unknown]
  - Interstitial lung disease [Unknown]
  - Chronic obstructive pulmonary disease [Unknown]
  - Colitis [Unknown]
  - Syncope [Unknown]
  - Device related infection [Unknown]
  - Cerebral haemorrhage [Unknown]
  - Endoscopy [Unknown]
  - Influenza A virus test positive [Unknown]
  - Prostate cancer [Unknown]
  - Respiratory tract infection bacterial [Unknown]
  - Blood alkaline phosphatase increased [Unknown]
  - CD4 lymphocytes decreased [Unknown]
  - Stomatitis [Unknown]
  - Lymphocyte count decreased [Unknown]
  - Back pain [Unknown]
  - Dyspnoea [Unknown]
  - Abdominal pain [Unknown]
  - Epistaxis [Unknown]
  - Cystitis [Unknown]
  - Type 2 diabetes mellitus [Unknown]
  - Ventricular extrasystoles [Unknown]
  - Left ventricular dysfunction [Unknown]
  - Pneumonia viral [Unknown]
  - Basosquamous carcinoma [Unknown]
  - Escherichia urinary tract infection [Unknown]
  - Hypertensive crisis [Unknown]
  - Cataract operation [Unknown]
  - Respiratory failure [Unknown]
  - Atypical pneumonia [Unknown]
  - Dislocation of vertebra [Unknown]
  - Enterococcal bacteraemia [Unknown]
  - Penile infection [Unknown]
  - Fatigue [Unknown]
  - Pneumonitis [Unknown]
  - Febrile neutropenia [Unknown]
  - Hypertriglyceridaemia [Unknown]
  - Malaise [Unknown]
  - Hypocalcaemia [Unknown]
  - Pneumonia bacterial [Unknown]
  - Pulmonary embolism [Unknown]
  - Urosepsis [Unknown]
  - Spinal fracture [Unknown]
  - Balanoposthitis [Unknown]
  - Haemoptysis [Unknown]
  - Neutropenic sepsis [Unknown]
  - Rash pustular [Unknown]
  - Tumour lysis syndrome [Unknown]
  - White coat hypertension [Unknown]
  - Amylase increased [Unknown]
  - Gamma-glutamyltransferase increased [Unknown]
  - Ejection fraction decreased [Unknown]
  - Haemoglobin decreased [Unknown]
  - Blood calcium increased [Unknown]
  - Neutropenia [Unknown]
  - Pyrexia [Unknown]
  - Alanine aminotransferase increased [Unknown]
  - Chills [Unknown]
  - Hyperuricaemia [Unknown]
  - Mouth ulceration [Unknown]
  - Myalgia [Unknown]
  - Rash maculo-papular [Unknown]
  - Lymphopenia [Unknown]
  - Hyponatraemia [Unknown]
  - Respiratory tract infection [Unknown]
  - Urticaria [Unknown]
  - Atrial fibrillation [Unknown]
  - Gingivitis [Unknown]
  - Neuralgia [Unknown]
  - Night sweats [Unknown]
